FAERS Safety Report 6083706-0 (Version None)
Quarter: 2009Q1

REPORT INFORMATION
  Report Type: 
  Country: None (occurrence: None)
  Receive Date: 20090217
  Receipt Date: 20090126
  Transmission Date: 20090719
  Serious: Yes (Hospitalization)
  Sender: FDA-Public Use
  Company Number: 170843

PATIENT
  Age: 77 Year
  Sex: Male

DRUGS (3)
  1. CARBOPLATIN [Suspect]
     Indication: NON-SMALL CELL LUNG CANCER
     Dates: start: 20070312, end: 20070412
  2. PACLITAXEL [Suspect]
     Indication: NON-SMALL CELL LUNG CANCER
     Dates: start: 20070312, end: 20070412
  3. (OTHER CHEMOTHERAPEUTICS) [Suspect]
     Indication: NON-SMALL CELL LUNG CANCER
     Dates: start: 20070312, end: 20070412

REACTIONS (7)
  - BONE MARROW FAILURE [None]
  - DEHYDRATION [None]
  - DIARRHOEA [None]
  - MALIGNANT NEOPLASM PROGRESSION [None]
  - NON-SMALL CELL LUNG CANCER [None]
  - PNEUMATOSIS INTESTINALIS [None]
  - UROSEPSIS [None]
